FAERS Safety Report 7756806-4 (Version None)
Quarter: 2011Q3

REPORT INFORMATION
  Report Type: 
  Country: None (occurrence: None)
  Receive Date: 20110916
  Receipt Date: 20110302
  Transmission Date: 20111222
  Serious: No
  Sender: FDA-Public Use
  Company Number: US-BAYER-2011-017057

PATIENT
  Sex: Female

DRUGS (1)
  1. MIRENA [Suspect]
     Indication: CONTRACEPTION
     Dosage: 20 MCG/24HR, CONT
     Route: 015
     Dates: start: 20100801

REACTIONS (6)
  - DEVICE EXPULSION [None]
  - MENSTRUAL DISORDER [None]
  - MENORRHAGIA [None]
  - HYPOMENORRHOEA [None]
  - DEVICE DISLOCATION [None]
  - MENOMETRORRHAGIA [None]
